APPROVED DRUG PRODUCT: DESOWEN
Active Ingredient: DESONIDE
Strength: 0.05%
Dosage Form/Route: CREAM;TOPICAL
Application: N019048 | Product #001 | TE Code: AB
Applicant: GALDERMA LABORATORIES LP
Approved: Dec 14, 1984 | RLD: No | RS: No | Type: RX